FAERS Safety Report 9771088 (Version 1)
Quarter: 2013Q4

REPORT INFORMATION
  Report Type: Spontaneous
  Country: US (occurrence: US)
  Receive Date: 20131218
  Receipt Date: 20131218
  Transmission Date: 20140711
  Serious: Yes (Other)
  Sender: FDA-Public Use
  Company Number: US-PFIZER INC-2013359711

PATIENT
  Sex: Male

DRUGS (2)
  1. ATORVASTATIN CALCIUM [Suspect]
     Indication: BLOOD CHOLESTEROL INCREASED
     Dosage: 40 MG, 1X/DAY
     Route: 048
  2. WARFARIN [Interacting]
     Indication: ANTICOAGULANT THERAPY
     Dosage: 41.25 MG, IN A WEEK (BY TAKING 1 TABLET OF 7.5MG FOR 4 DAYS + HALF TABLET OF 7.5MG FOR 3 DAYS)
     Route: 048

REACTIONS (4)
  - Arthropathy [Unknown]
  - Musculoskeletal disorder [Unknown]
  - Thrombosis [Unknown]
  - Drug interaction [Unknown]
